FAERS Safety Report 8333039-4 (Version None)
Quarter: 2012Q2

REPORT INFORMATION
  Report Type: 
  Country: None (occurrence: None)
  Receive Date: 20120503
  Receipt Date: 20120425
  Transmission Date: 20120825
  Serious: Yes (Other)
  Sender: FDA-Public Use
  Company Number: PHHY2012BR036192

PATIENT
  Sex: Male
  Weight: 87 kg

DRUGS (7)
  1. ALDACTONE [Concomitant]
     Dosage: 1 DF, A DAY
     Route: 048
     Dates: start: 20110801
  2. GLIMEPIRIDE [Concomitant]
     Indication: DIABETES MELLITUS
     Dosage: 1 DF, A DAY
     Route: 048
  3. HYDROCHLOROTHIAZIDE [Concomitant]
     Indication: DIURETIC THERAPY
     Dosage: ONE TABLET IN THE MORNING AND ONE TABLET IN THE AFTERNOON
     Route: 048
  4. TEGRETOL [Suspect]
     Indication: CONVULSION
     Dosage: 1 TABLET IN THE MORNING AND 1 TABLET A NIGHT
     Route: 048
     Dates: start: 20111201
  5. LEVOTHYROXINE SODIUM [Concomitant]
     Indication: THYROID DISORDER
     Dosage: 1 DF, IN THE MORNING
     Route: 048
  6. DIOVAN [Suspect]
     Indication: HYPERTENSION
     Dosage: 1 DF (80MG), A DAY
     Route: 048
     Dates: start: 20100101
  7. SLOW-K [Concomitant]
     Indication: ELECTROLYTE SUBSTITUTION THERAPY
     Dosage: 1 TABLET IN THE MORNING AND 1 TABLET IN THE EVENING
     Route: 048

REACTIONS (4)
  - VISUAL ACUITY REDUCED [None]
  - DIZZINESS [None]
  - MALAISE [None]
  - VISUAL IMPAIRMENT [None]
